FAERS Safety Report 6976693-1 (Version None)
Quarter: 2010Q3

REPORT INFORMATION
  Report Type: 
  Country: None (occurrence: None)
  Receive Date: 20100824
  Receipt Date: 20100608
  Transmission Date: 20110219
  Serious: No
  Sender: FDA-Public Use
  Company Number: 309828

PATIENT
  Age: 56 Year
  Sex: Female

DRUGS (2)
  1. VICTOZA [Suspect]
     Indication: TYPE 2 DIABETES MELLITUS
     Dosage: 1.2 MG, QD, SUBCUTANEOUS; 0.6 MG, QD, SUBCUTANEOUS
     Route: 058
     Dates: start: 20100601, end: 20100607
  2. VICTOZA [Suspect]
     Indication: TYPE 2 DIABETES MELLITUS
     Dosage: 1.2 MG, QD, SUBCUTANEOUS; 0.6 MG, QD, SUBCUTANEOUS
     Route: 058
     Dates: start: 20100608

REACTIONS (1)
  - NAUSEA [None]
